FAERS Safety Report 10230650 (Version 1)
Quarter: 2014Q2

REPORT INFORMATION
  Report Type: Spontaneous
  Country: US (occurrence: US)
  Receive Date: 20140611
  Receipt Date: 20140611
  Transmission Date: 20141212
  Serious: Yes (Death)
  Sender: FDA-Public Use
  Company Number: US-PFIZER INC-2014158533

PATIENT
  Age: 61 Year
  Sex: Male

DRUGS (4)
  1. INLYTA [Suspect]
     Indication: RENAL CELL CARCINOMA
     Dosage: 2 TABLET (2MG) TWICE DAILY
     Route: 048
  2. VOTRIENT [Concomitant]
     Dosage: 200 MG, UNK
  3. LEVOTHYROXIN [Concomitant]
     Dosage: 100 UG, UNK
  4. HYDROCO/ APAP [Concomitant]
     Dosage: HYDROCODONE 10MG/ PARACETAMOL 300MG, UNK

REACTIONS (1)
  - Death [Fatal]
